FAERS Safety Report 21931675 (Version 1)
Quarter: 2023Q1

REPORT INFORMATION
  Report Type: Spontaneous
  Country: US (occurrence: None)
  Receive Date: 20230130
  Receipt Date: 20230130
  Transmission Date: 20230418
  Serious: Yes (Life-Threatening)
  Sender: FDA-Public Use
  Company Number: None

PATIENT
  Age: 38 Year
  Sex: Female
  Weight: 72 kg

DRUGS (2)
  1. TALTZ [Suspect]
     Active Substance: IXEKIZUMAB
     Indication: Psoriatic arthropathy
     Dosage: OTHER QUANTITY : 1 INJECTION(S);?OTHER FREQUENCY : 2WKS X2 THEN 4WKS;?
     Route: 058
     Dates: start: 20221230
  2. TALTZ [Suspect]
     Active Substance: IXEKIZUMAB
     Indication: Psoriasis

REACTIONS (8)
  - Urticaria [None]
  - Pruritus [None]
  - Erythema [None]
  - Burning sensation [None]
  - Lip swelling [None]
  - Pharyngeal swelling [None]
  - Paraesthesia oral [None]
  - Dysphonia [None]

NARRATIVE: CASE EVENT DATE: 20230113
